FAERS Safety Report 8074758-7 (Version None)
Quarter: 2012Q1

REPORT INFORMATION
  Report Type: 
  Country: None (occurrence: None)
  Receive Date: 20120126
  Receipt Date: 20120119
  Transmission Date: 20120608
  Serious: Yes (Hospitalization)
  Sender: FDA-Public Use
  Company Number: JP-ROCHE-641829

PATIENT
  Sex: Female

DRUGS (35)
  1. ACTEMRA [Suspect]
     Route: 041
     Dates: start: 20090501, end: 20090501
  2. PREDNISOLONE [Suspect]
  3. PREDNISOLONE [Suspect]
  4. PREDNISOLONE [Suspect]
  5. PREDNISOLONE [Concomitant]
     Route: 048
  6. PREDNISOLONE [Concomitant]
     Route: 048
     Dates: start: 20090101, end: 20090701
  7. ACTEMRA [Suspect]
     Route: 041
     Dates: start: 20090106, end: 20090106
  8. PREDNISOLONE [Suspect]
  9. PREDNISOLONE [Suspect]
  10. PREDNISOLONE [Concomitant]
     Route: 048
     Dates: start: 20080802, end: 20080915
  11. PREDNISOLONE [Concomitant]
     Route: 048
     Dates: start: 20100101, end: 20100301
  12. PREDNISOLONE [Suspect]
  13. PREDNISOLONE [Suspect]
  14. PREDNISOLONE [Suspect]
  15. METHOTREXATE [Suspect]
     Indication: PRODUCT USED FOR UNKNOWN INDICATION
     Route: 048
  16. SELBEX [Concomitant]
     Dosage: DOSE FORM: PERORAL AGENT
     Route: 048
  17. PREDNISOLONE [Suspect]
  18. PREDNISOLONE [Concomitant]
     Route: 048
  19. PREDNISOLONE [Concomitant]
     Route: 048
     Dates: start: 20081113, end: 20090105
  20. LANSOPRAZOLE [Concomitant]
     Route: 048
  21. ACTEMRA [Suspect]
     Route: 041
     Dates: start: 20081113, end: 20081113
  22. ACTEMRA [Suspect]
     Route: 041
     Dates: start: 20081211, end: 20081211
  23. ACTEMRA [Suspect]
     Route: 041
     Dates: start: 20090205, end: 20090205
  24. ACTEMRA [Suspect]
     Route: 041
     Dates: start: 20090526, end: 20090526
  25. PREDNISOLONE [Suspect]
     Indication: PRODUCT USED FOR UNKNOWN INDICATION
     Route: 048
  26. PREDNISOLONE [Suspect]
  27. PREDNISOLONE [Concomitant]
     Route: 048
     Dates: start: 20090701, end: 20100101
  28. ACTEMRA [Suspect]
     Indication: RHEUMATOID ARTHRITIS
     Route: 041
     Dates: start: 20080918, end: 20080918
  29. ACTEMRA [Suspect]
     Route: 041
     Dates: start: 20081016, end: 20081016
  30. ACTEMRA [Suspect]
     Route: 041
     Dates: start: 20090303, end: 20090303
  31. PREDNISOLONE [Concomitant]
     Route: 048
     Dates: start: 20090106, end: 20090302
  32. ACTEMRA [Suspect]
     Route: 041
     Dates: start: 20100331, end: 20100331
  33. ACTEMRA [Suspect]
     Dosage: NOTE: DOSAGE IS UNCERTAIN.
     Route: 041
     Dates: start: 20100305, end: 20100305
  34. PREDNISOLONE [Concomitant]
     Route: 048
     Dates: start: 20080916, end: 20081112
  35. PREDNISOLONE [Concomitant]
     Route: 048

REACTIONS (5)
  - PNEUMONIA [None]
  - PREGNANCY [None]
  - PREMATURE BABY [None]
  - ARTHRALGIA [None]
  - BLOOD CREATINE PHOSPHOKINASE INCREASED [None]
